FAERS Safety Report 12873349 (Version 1)
Quarter: 2016Q4

REPORT INFORMATION
  Report Type: Spontaneous
  Country: US (occurrence: US)
  Receive Date: 20161021
  Receipt Date: 20161021
  Transmission Date: 20170207
  Serious: No
  Sender: FDA-Public Use
  Company Number: US-ALLERGAN-1518295US

PATIENT
  Age: 56 Year
  Sex: Male
  Weight: 111.11 kg

DRUGS (3)
  1. FML [Suspect]
     Active Substance: FLUOROMETHOLONE
     Indication: LACRIMATION INCREASED
     Dosage: USED ONLY 4 DAYS
     Route: 061
     Dates: start: 201411, end: 201411
  2. TEMAZEPAM. [Concomitant]
     Active Substance: TEMAZEPAM
     Indication: INSOMNIA
  3. BUTALBIT/APAP/CAFFEINE PLUS [Concomitant]
     Active Substance: ACETAMINOPHEN\BUTALBITAL\CAFFEINE
     Indication: HEADACHE

REACTIONS (5)
  - Off label use [Unknown]
  - Eye irritation [Recovered/Resolved]
  - Eye swelling [Recovered/Resolved]
  - Swelling face [Recovered/Resolved]
  - Ocular rosacea [Unknown]

NARRATIVE: CASE EVENT DATE: 201411
